FAERS Safety Report 23124201 (Version 1)
Quarter: 2023Q4

REPORT INFORMATION
  Report Type: Spontaneous
  Country: US (occurrence: None)
  Receive Date: 20231027
  Receipt Date: 20231027
  Transmission Date: 20240110
  Serious: Yes (Hospitalization)
  Sender: FDA-Public Use
  Company Number: None

PATIENT
  Sex: Female
  Weight: 66.7 kg

DRUGS (1)
  1. PEMBROLIZUMAB [Suspect]
     Active Substance: PEMBROLIZUMAB
     Dates: end: 20230810

REACTIONS (4)
  - Nausea [None]
  - Vomiting [None]
  - Drug intolerance [None]
  - Small intestinal obstruction [None]

NARRATIVE: CASE EVENT DATE: 20230922
